FAERS Safety Report 4878820-9 (Version None)
Quarter: 2006Q1

REPORT INFORMATION
  Report Type: 
  Country: None (occurrence: None)
  Receive Date: 20060112
  Receipt Date: 20060104
  Transmission Date: 20060701
  Serious: Yes (Hospitalization, Other)
  Sender: FDA-Public Use
  Company Number: US-GLAXOSMITHKLINE-A0587756A

PATIENT
  Sex: Female

DRUGS (8)
  1. LAMICTAL [Suspect]
     Indication: BIPOLAR II DISORDER
     Route: 048
  2. LEXAPRO [Concomitant]
  3. RITALIN [Concomitant]
  4. ATIVAN [Concomitant]
  5. PERCOCET [Concomitant]
  6. ZYPREXA [Concomitant]
  7. SYNTHROID [Concomitant]
  8. CYTOMEL [Concomitant]

REACTIONS (4)
  - ABDOMINAL PAIN [None]
  - FALLOPIAN TUBE DISORDER [None]
  - GANGRENE [None]
  - SALPINGECTOMY [None]
